FAERS Safety Report 6531830-8 (Version None)
Quarter: 2010Q1

REPORT INFORMATION
  Report Type: 
  Country: None (occurrence: None)
  Receive Date: 20100108
  Receipt Date: 20100105
  Transmission Date: 20100710
  Serious: Yes (Hospitalization, Other)
  Sender: FDA-Public Use
  Company Number: FR-BRISTOL-MYERS SQUIBB COMPANY-14923189

PATIENT
  Age: 53 Year
  Sex: Male

DRUGS (6)
  1. REYATAZ [Suspect]
     Indication: ANTIRETROVIRAL THERAPY
     Route: 048
  2. PLAVIX [Interacting]
     Route: 048
  3. NORVIR [Interacting]
     Indication: ANTIRETROVIRAL THERAPY
     Route: 048
  4. TRUVADA [Concomitant]
     Route: 048
  5. CRESTOR [Concomitant]
     Route: 048
  6. ALPRAZOLAM [Concomitant]
     Route: 048

REACTIONS (2)
  - CEREBROVASCULAR ACCIDENT [None]
  - DRUG INTERACTION [None]
